FAERS Safety Report 6926022-4 (Version None)
Quarter: 2010Q3

REPORT INFORMATION
  Report Type: 
  Country: None (occurrence: None)
  Receive Date: 20100816
  Receipt Date: 20100804
  Transmission Date: 20110219
  Serious: Yes (Other)
  Sender: FDA-Public Use
  Company Number: IE-PFIZER INC-2010097723

PATIENT
  Age: 71 Year
  Sex: Male

DRUGS (1)
  1. PHENYTOIN SODIUM CAP [Suspect]
     Dosage: 100 MG, 2X/DAY

REACTIONS (1)
  - RENAL FAILURE [None]
